FAERS Safety Report 16517621 (Version 1)
Quarter: 2019Q3

REPORT INFORMATION
  Report Type: Spontaneous
  Country: US (occurrence: US)
  Receive Date: 20190702
  Receipt Date: 20190702
  Transmission Date: 20191004
  Serious: Yes (Other)
  Sender: FDA-Public Use
  Company Number: None

PATIENT
  Age: 31 Year
  Sex: Female
  Weight: 81 kg

DRUGS (1)
  1. PRISTIQ EXTENDED-RELEASE [Suspect]
     Active Substance: DESVENLAFAXINE SUCCINATE
     Indication: MAJOR DEPRESSION
     Dates: start: 20170313, end: 20190702

REACTIONS (7)
  - Dizziness [None]
  - Nausea [None]
  - Headache [None]
  - Paraesthesia [None]
  - Withdrawal syndrome [None]
  - Hallucination [None]
  - Hyperhidrosis [None]

NARRATIVE: CASE EVENT DATE: 20190702
